FAERS Safety Report 19475985 (Version 2)
Quarter: 2022Q1

REPORT INFORMATION
  Report Type: Spontaneous
  Country: US (occurrence: None)
  Receive Date: 20210630
  Receipt Date: 20220224
  Transmission Date: 20220423
  Serious: Yes (Other)
  Sender: FDA-Public Use
  Company Number: US-HIKMA PHARMACEUTICALS USA INC.-US-H14001-21-03048

PATIENT
  Age: 74 Year
  Sex: Female

DRUGS (2)
  1. LIDOCAINE [Suspect]
     Active Substance: LIDOCAINE
     Indication: Neovascular age-related macular degeneration
     Dosage: UNKNOWN
     Route: 057
  2. POVIDONE-IODINE [Suspect]
     Active Substance: POVIDONE-IODINE
     Indication: Neovascular age-related macular degeneration
     Dosage: UNKNOWN
     Route: 061

REACTIONS (1)
  - Endophthalmitis [Unknown]
